FAERS Safety Report 4683348-5 (Version None)
Quarter: 2005Q2

REPORT INFORMATION
  Report Type: 
  Country: None (occurrence: None)
  Receive Date: 20050606
  Receipt Date: 20050606
  Transmission Date: 20051028
  Serious: Yes (Disabling)
  Sender: FDA-Public Use
  Company Number: None

PATIENT
  Age: 18 Year
  Sex: Male
  Weight: 89 kg

DRUGS (1)
  1. MODIODAL 100 MG CEPHALON [Suspect]
     Dosage: 100 MG ONCE PER DAY ORAL
     Route: 048
     Dates: start: 20050518, end: 20050724

REACTIONS (12)
  - DRY MOUTH [None]
  - DYSGRAPHIA [None]
  - HYPERVIGILANCE [None]
  - IMPAIRED DRIVING ABILITY [None]
  - JOINT STIFFNESS [None]
  - LEARNING DISORDER [None]
  - MEMORY IMPAIRMENT [None]
  - MENTAL IMPAIRMENT [None]
  - NERVOUS SYSTEM DISORDER [None]
  - SKIN EXFOLIATION [None]
  - SPEECH DISORDER [None]
  - THINKING ABNORMAL [None]
